FAERS Safety Report 6198917-3 (Version None)
Quarter: 2009Q2

REPORT INFORMATION
  Report Type: 
  Country: None (occurrence: None)
  Receive Date: 20090522
  Receipt Date: 20090519
  Transmission Date: 20091009
  Serious: Yes (Hospitalization)
  Sender: FDA-Public Use
  Company Number: US-ASTRAZENECA-2009UW12726

PATIENT
  Sex: Female

DRUGS (6)
  1. SEROQUEL [Suspect]
     Route: 048
  2. LITHIUM [Concomitant]
  3. ZYPREXA [Concomitant]
  4. LAMICTAL [Concomitant]
  5. SYNTHROID [Concomitant]
  6. CLONOPIN [Concomitant]

REACTIONS (3)
  - HYPOTHYROIDISM [None]
  - SCHIZOAFFECTIVE DISORDER [None]
  - WEIGHT INCREASED [None]
